FAERS Safety Report 5743353-4 (Version None)
Quarter: 2008Q2

REPORT INFORMATION
  Report Type: 
  Country: None (occurrence: None)
  Receive Date: 20080520
  Receipt Date: 20080508
  Transmission Date: 20081010
  Serious: Yes (Other)
  Sender: FDA-Public Use
  Company Number: GB-RANBAXY-2008RR-15060

PATIENT

DRUGS (3)
  1. SIMVASTATIN [Suspect]
     Indication: HYPERCHOLESTEROLAEMIA
     Dosage: 1 DF, QD
     Route: 048
     Dates: start: 20071031, end: 20080430
  2. CODEINE SUL TAB [Concomitant]
     Dosage: 1 DF, QID
     Dates: start: 20040721
  3. VENLAFAXINE HYDROCHLORIDE [Concomitant]
     Dosage: 1 DF, BID
     Dates: start: 20071031

REACTIONS (1)
  - HALLUCINATION, VISUAL [None]
